FAERS Safety Report 9458962 (Version 1)
Quarter: 2013Q3

REPORT INFORMATION
  Report Type: Spontaneous
  Country: US (occurrence: US)
  Receive Date: 20130814
  Receipt Date: 20130814
  Transmission Date: 20140515
  Serious: No
  Sender: FDA-Public Use
  Company Number: US-TARO-2012P1068354

PATIENT
  Sex: Male

DRUGS (2)
  1. DESONIDE CREAM USP 0.05% [Suspect]
     Indication: RASH
     Dates: start: 201209
  2. DESONIDE CREAM USP 0.05% [Suspect]
     Indication: RASH
     Route: 047
     Dates: start: 201212, end: 201212

REACTIONS (2)
  - Accidental exposure to product [Recovered/Resolved]
  - Vision blurred [Not Recovered/Not Resolved]
